FAERS Safety Report 18134028 (Version 1)
Quarter: 2020Q3

REPORT INFORMATION
  Report Type: Spontaneous
  Country: UM (occurrence: UM)
  Receive Date: 20200807
  Receipt Date: 20200807
  Transmission Date: 20201103
  Serious: Yes (Death)
  Sender: FDA-Public Use
  Company Number: None

PATIENT
  Age: 81 Year
  Sex: Male
  Weight: 102.06 kg

DRUGS (23)
  1. CLOTRIMAZOLE AND BETAMETHASONE DIPROPIONATE [Concomitant]
     Active Substance: BETAMETHASONE\BETAMETHASONE DIPROPIONATE\CLOTRIMAZOLE
  2. TRIAMCINOLONE [Concomitant]
     Active Substance: TRIAMCINOLONE
  3. ALPHANINE SD [Suspect]
     Active Substance: COAGULATION FACTOR IX HUMAN
     Indication: FACTOR IX DEFICIENCY
     Dosage: ?          OTHER STRENGTH:1520 UNITS ;OTHER DOSE:10500 UNITS;?
     Route: 042
     Dates: start: 20200124, end: 20200327
  4. GABAPENTIN. [Concomitant]
     Active Substance: GABAPENTIN
  5. LIDODERM [Concomitant]
     Active Substance: LIDOCAINE
  6. SULFAMETHOXAZOLE?TRIMETHOPRIM [Concomitant]
     Active Substance: SULFAMETHOXAZOLE\TRIMETHOPRIM
  7. ARTIFICIAL TEAR [Concomitant]
     Active Substance: LANOLIN\MINERAL OIL\PETROLATUM
  8. GLIMEPIRIDE. [Concomitant]
     Active Substance: GLIMEPIRIDE
  9. LOTIRMIN ULTRA [Concomitant]
  10. TUMS [Concomitant]
     Active Substance: CALCIUM CARBONATE
  11. CELEBREX [Concomitant]
     Active Substance: CELECOXIB
  12. URGENT QR PACKAGE [Concomitant]
  13. DICLOFENAC SODIUM. [Concomitant]
     Active Substance: DICLOFENAC SODIUM
  14. OLOPATADINE. [Concomitant]
     Active Substance: OLOPATADINE
  15. POTASSIUM CHLORIDE ER [Concomitant]
     Active Substance: POTASSIUM CHLORIDE
  16. SALINE FLUSH [Concomitant]
     Active Substance: SODIUM CHLORIDE
  17. BETAMETHASONE VALERATE. [Concomitant]
     Active Substance: BETAMETHASONE VALERATE
  18. HYDROCODONE?APAP [Concomitant]
     Active Substance: ACETAMINOPHEN\HYDROCODONE
  19. LOSARTAN?HCTZ [Concomitant]
     Active Substance: HYDROCHLOROTHIAZIDE\LOSARTAN
  20. NYSTATIN. [Concomitant]
     Active Substance: NYSTATIN
  21. ATENOLOL. [Concomitant]
     Active Substance: ATENOLOL
  22. TIZANIDINE HCL [Concomitant]
     Active Substance: TIZANIDINE HYDROCHLORIDE
  23. ALPHANINE SD [Suspect]
     Active Substance: COAGULATION FACTOR IX HUMAN
     Indication: FACTOR IX DEFICIENCY
     Dosage: ?          OTHER STRENGTH:470 UNITS ;OTHER DOSE:5100 UNITS;?
     Route: 042
     Dates: start: 20200124, end: 20200327

REACTIONS (2)
  - Cellulitis [None]
  - Fall [None]

NARRATIVE: CASE EVENT DATE: 20200327
